FAERS Safety Report 8554221-7 (Version None)
Quarter: 2012Q3

REPORT INFORMATION
  Report Type: 
  Country: None (occurrence: None)
  Receive Date: 20120731
  Receipt Date: 20120720
  Transmission Date: 20120928
  Serious: Yes (Other)
  Sender: FDA-Public Use
  Company Number: GB-009507513-1111GBR00127

PATIENT

DRUGS (1)
  1. MAXALT [Suspect]
     Indication: MIGRAINE PROPHYLAXIS
     Route: 048
     Dates: start: 20010101

REACTIONS (2)
  - RETINAL TEAR [None]
  - RETINAL DETACHMENT [None]
